FAERS Safety Report 23869068 (Version 1)
Quarter: 2024Q2

REPORT INFORMATION
  Report Type: Spontaneous
  Country: US (occurrence: None)
  Receive Date: 20240516
  Receipt Date: 20240516
  Transmission Date: 20240716
  Serious: Yes (Hospitalization)
  Sender: FDA-Public Use
  Company Number: None

PATIENT
  Sex: Female
  Weight: 61.2 kg

DRUGS (7)
  1. LEQEMBI [Suspect]
     Active Substance: LECANEMAB-IRMB
     Indication: Dementia Alzheimer^s type
     Dosage: 617 MG EVERY  2 WEEKS INTRAVENOUS
     Route: 042
     Dates: start: 20240404, end: 20240502
  2. LEQEMBI [Suspect]
     Active Substance: LECANEMAB-IRMB
     Indication: Dementia Alzheimer^s type
     Dosage: 617 MG EVERY 2 WEEKS INTRAVENOUS ?
     Route: 042
     Dates: start: 20240404
  3. ROPINIROLE [Concomitant]
     Active Substance: ROPINIROLE
  4. DONEPEZIL [Concomitant]
  5. ambein [Concomitant]
  6. ATORVASTATIN [Concomitant]
     Active Substance: ATORVASTATIN
  7. multivitamin [Concomitant]

REACTIONS (2)
  - Nervous system disorder [None]
  - Seizure [None]
